FAERS Safety Report 5558145-9 (Version None)
Quarter: 2007Q4

REPORT INFORMATION
  Report Type: 
  Country: None (occurrence: None)
  Receive Date: 20071214
  Receipt Date: 20071206
  Transmission Date: 20080405
  Serious: Yes (Hospitalization)
  Sender: FDA-Public Use
  Company Number: FR-ROCHE-535715

PATIENT
  Age: 59 Year
  Sex: Female

DRUGS (7)
  1. CAPECITABINE [Suspect]
     Dosage: DOSAGE FORM: FILM-COATED TABLET. AS PER PROTOCOL CAPECITABINE (XELODA) 1000MG/M^2 TWICE A DAY D1-D14
     Route: 048
     Dates: start: 20070720
  2. PACLITAXEL [Suspect]
     Dosage: DOSAGE FORM: CONCENTRATE FOR SOLUTION FOR INFUSION. FRQUENCY REPORTED AS 1/7 DAYS. AS PER PROTOCOL +
     Route: 042
     Dates: start: 20070720, end: 20070903
  3. LEVOTHYROX [Concomitant]
  4. TELFAST [Concomitant]
  5. PYOSTACINE [Concomitant]
  6. NASACORT [Concomitant]
  7. LOCATOP [Concomitant]

REACTIONS (1)
  - ERYSIPELAS [None]
